FAERS Safety Report 6911830-6 (Version None)
Quarter: 2010Q3

REPORT INFORMATION
  Report Type: 
  Country: None (occurrence: None)
  Receive Date: 20100806
  Receipt Date: 20070709
  Transmission Date: 20110219
  Serious: No
  Sender: FDA-Public Use
  Company Number: US-PFIZER INC-2007056966

PATIENT
  Sex: Female
  Weight: 51.3 kg

DRUGS (2)
  1. DETROL LA [Suspect]
     Indication: BLADDER DISORDER
     Dates: start: 20070705, end: 20070708
  2. VITAMIN TAB [Concomitant]

REACTIONS (2)
  - HEADACHE [None]
  - TREMOR [None]
